FAERS Safety Report 8564139-1 (Version None)
Quarter: 2012Q3

REPORT INFORMATION
  Report Type: 
  Country: None (occurrence: None)
  Receive Date: 20120723
  Receipt Date: 20120712
  Transmission Date: 20120928
  Serious: No
  Sender: FDA-Public Use
  Company Number: 2012-00138

PATIENT
  Age: 31 Year
  Sex: Female
  Weight: 61.2356 kg

DRUGS (3)
  1. OXYMETAZOLINE HYDROCHLORIDE SPRAY [Suspect]
     Indication: NASAL CONGESTION
     Dosage: USED TWICE DAILY FOR 2-3 DAYS
     Dates: start: 20120301, end: 20120303
  2. ZYRTEC [Concomitant]
  3. MOTRIN [Concomitant]

REACTIONS (2)
  - AGEUSIA [None]
  - ANOSMIA [None]
